FAERS Safety Report 7940313-X (Version None)
Quarter: 2011Q4

REPORT INFORMATION
  Report Type: 
  Country: None (occurrence: None)
  Receive Date: 20111126
  Receipt Date: 20110926
  Transmission Date: 20120403
  Serious: No
  Sender: FDA-Public Use
  Company Number: US-BAYER-2011-093655

PATIENT
  Sex: Female
  Weight: 181 kg

DRUGS (1)
  1. NAPROXEN (ALEVE) [Suspect]
     Indication: PAIN
     Dosage: 2 ALEVE, BID
     Dates: start: 20110401

REACTIONS (1)
  - MEDICATION ERROR [None]
